FAERS Safety Report 5578494-8 (Version None)
Quarter: 2007Q4

REPORT INFORMATION
  Report Type: 
  Country: None (occurrence: None)
  Receive Date: 20071227
  Receipt Date: 20071206
  Transmission Date: 20080405
  Serious: Yes (Other)
  Sender: FDA-Public Use
  Company Number: 07GB000970

PATIENT
  Sex: Female

DRUGS (2)
  1. PAROXETINE [Suspect]
     Indication: DEPRESSION
     Dosage: 30 MG, QD, ORAL
     Route: 048
     Dates: start: 19930601, end: 19930901
  2. THIORIDAZINE HCL [Concomitant]

REACTIONS (1)
  - NEUTROPENIA [None]
